FAERS Safety Report 15143571 (Version 1)
Quarter: 2018Q3

REPORT INFORMATION
  Report Type: Report from Study
  Country: US (occurrence: US)
  Receive Date: 20180713
  Receipt Date: 20180713
  Transmission Date: 20181010
  Serious: Yes (Other)
  Sender: FDA-Public Use
  Company Number: US-JNJFOC-20180714166

PATIENT

DRUGS (1)
  1. STELARA [Suspect]
     Active Substance: USTEKINUMAB
     Indication: CROHN^S DISEASE
     Route: 042

REACTIONS (5)
  - Productive cough [Unknown]
  - Abscess [Unknown]
  - Malaise [Unknown]
  - Fistula [Unknown]
  - Arthralgia [Unknown]

NARRATIVE: CASE EVENT DATE: 201805
